FAERS Safety Report 6169475-4 (Version None)
Quarter: 2009Q2

REPORT INFORMATION
  Report Type: 
  Country: None (occurrence: None)
  Receive Date: 20090424
  Receipt Date: 20081124
  Transmission Date: 20091009
  Serious: No
  Sender: FDA-Public Use
  Company Number: ALL1-2008-03408

PATIENT
  Age: 8 Year
  Sex: Female
  Weight: 26.8 kg

DRUGS (1)
  1. VYVANSE [Suspect]
     Indication: ATTENTION DEFICIT/HYPERACTIVITY DISORDER
     Dosage: 20 MG, 1X/DAY:QD, ORAL
     Route: 048
     Dates: start: 20081123, end: 20081124

REACTIONS (6)
  - AFFECT LABILITY [None]
  - DISTURBANCE IN ATTENTION [None]
  - DRUG EFFECT INCREASED [None]
  - FEELING JITTERY [None]
  - INSOMNIA [None]
  - TIC [None]
